FAERS Safety Report 6602305-2 (Version None)
Quarter: 2010Q1

REPORT INFORMATION
  Report Type: 
  Country: None (occurrence: None)
  Receive Date: 20100225
  Receipt Date: 20100223
  Transmission Date: 20100710
  Serious: Yes (Death, Congenital Anomaly)
  Sender: FDA-Public Use
  Company Number: A0679815A

PATIENT
  Sex: Male

DRUGS (2)
  1. PAXIL [Suspect]
     Indication: DEPRESSION
     Dosage: 20MG PER DAY
     Dates: end: 20060101
  2. VITAMIN TAB [Concomitant]

REACTIONS (8)
  - ATRIAL SEPTAL DEFECT [None]
  - CONGENITAL PULMONARY ARTERY ANOMALY [None]
  - DEATH [None]
  - DOUBLE OUTLET RIGHT VENTRICLE [None]
  - DRUG EXPOSURE DURING PREGNANCY [None]
  - HEART DISEASE CONGENITAL [None]
  - UNIVENTRICULAR HEART [None]
  - VENTRICULAR SEPTAL DEFECT [None]
